FAERS Safety Report 9645644 (Version 1)
Quarter: 2013Q4

REPORT INFORMATION
  Report Type: Report from Study
  Country: JP (occurrence: JP)
  Receive Date: 20131025
  Receipt Date: 20131025
  Transmission Date: 20140711
  Serious: Yes (Death, Hospitalization, Other)
  Sender: FDA-Public Use
  Company Number: JP-TAKEDA-TCI2013A06261

PATIENT
  Age: 56 Year
  Sex: Male
  Weight: 79 kg

DRUGS (7)
  1. LANSOPRAZOLE [Suspect]
     Indication: PROPHYLAXIS AGAINST GASTROINTESTINAL ULCER
     Dosage: 15 MG, QD
     Route: 048
     Dates: start: 20120605, end: 20130409
  2. BLOPRESS [Concomitant]
     Route: 048
  3. BAYASPIRIN [Concomitant]
     Indication: THROMBOSIS PROPHYLAXIS
     Route: 048
  4. LASIX                              /00032601/ [Concomitant]
     Route: 048
  5. PLAVIX [Concomitant]
     Indication: ANGINA PECTORIS
     Route: 048
  6. METGLUCO [Concomitant]
     Route: 048
  7. HUMALOG MIX [Concomitant]
     Route: 042

REACTIONS (3)
  - Cardiac failure congestive [Fatal]
  - Cardiac failure congestive [Recovering/Resolving]
  - Cardiac failure congestive [Recovering/Resolving]
